FAERS Safety Report 12443202 (Version 2)
Quarter: 2016Q3

REPORT INFORMATION
  Report Type: Spontaneous
  Country: DK (occurrence: DK)
  Receive Date: 20160607
  Receipt Date: 20160706
  Transmission Date: 20161109
  Serious: Yes (Other)
  Sender: FDA-Public Use
  Company Number: DK-GLAXOSMITHKLINE-DK2016GSK061546

PATIENT
  Sex: Female

DRUGS (3)
  1. LAMISIL ONCE [Suspect]
     Active Substance: TERBINAFINE HYDROCHLORIDE
     Indication: TINEA PEDIS
     Dosage: 10 MG/G
     Route: 003
     Dates: start: 20160416, end: 20160416
  2. LAMISIL ONCE [Suspect]
     Active Substance: TERBINAFINE HYDROCHLORIDE
     Indication: FUNGAL SKIN INFECTION
  3. LAMISIL [Suspect]
     Active Substance: TERBINAFINE HYDROCHLORIDE
     Indication: FUNGAL SKIN INFECTION
     Dosage: 10 MG/G
     Route: 003
     Dates: start: 20160425, end: 20160503

REACTIONS (6)
  - Rash [Not Recovered/Not Resolved]
  - Pruritus [Not Recovered/Not Resolved]
  - Drug ineffective [Unknown]
  - Condition aggravated [Unknown]
  - Staphylococcal infection [Unknown]
  - Urticaria [Unknown]

NARRATIVE: CASE EVENT DATE: 201604
